FAERS Safety Report 24625272 (Version 1)
Quarter: 2024Q4

REPORT INFORMATION
  Report Type: Spontaneous
  Country: US (occurrence: US)
  Receive Date: 20241115
  Receipt Date: 20241115
  Transmission Date: 20250115
  Serious: Yes (Other)
  Sender: BLUEPRINT MEDICINES
  Company Number: US-Blueprint Medicines Corporation-5311

PATIENT
  Age: 60 Year
  Sex: Female

DRUGS (1)
  1. AYVAKIT [Suspect]
     Active Substance: AVAPRITINIB
     Indication: Haematopoietic neoplasm
     Route: 065
     Dates: start: 20230517

REACTIONS (6)
  - Epilepsy [Unknown]
  - Central nervous system lesion [Unknown]
  - Back disorder [Unknown]
  - Brain fog [Unknown]
  - Memory impairment [Unknown]
  - Somnolence [Unknown]
